FAERS Safety Report 25852007 (Version 1)
Quarter: 2025Q3

REPORT INFORMATION
  Report Type: Report from Study
  Country: MY (occurrence: MY)
  Receive Date: 20250926
  Receipt Date: 20250926
  Transmission Date: 20251020
  Serious: Yes (Other)
  Sender: MERCK SHARP & DOHME LLC
  Company Number: MY-009507513-2293036

PATIENT
  Age: 63 Year

DRUGS (4)
  1. KEYTRUDA [Suspect]
     Active Substance: PEMBROLIZUMAB
     Dosage: CYCLE 1
     Route: 065
     Dates: start: 20250120, end: 20250120
  2. KEYTRUDA [Suspect]
     Active Substance: PEMBROLIZUMAB
     Dosage: CYCLE 6
     Route: 065
     Dates: start: 20250506, end: 20250506
  3. KEYTRUDA [Suspect]
     Active Substance: PEMBROLIZUMAB
     Dosage: CYCLE 7
     Route: 065
     Dates: start: 20250530, end: 20250530
  4. KEYTRUDA [Suspect]
     Active Substance: PEMBROLIZUMAB
     Dosage: CYCLE 8
     Route: 065
     Dates: start: 20250623, end: 20250623

REACTIONS (4)
  - Radiotherapy [Unknown]
  - Inappropriate schedule of product administration [Unknown]
  - Surgery [Unknown]
  - Inappropriate schedule of product administration [Unknown]

NARRATIVE: CASE EVENT DATE: 20250101
